FAERS Safety Report 5400083-6 (Version None)
Quarter: 2007Q3

REPORT INFORMATION
  Report Type: 
  Country: None (occurrence: None)
  Receive Date: 20070726
  Receipt Date: 20070726
  Transmission Date: 20080115
  Serious: Yes (Life-Threatening, Hospitalization, Disabling)
  Sender: FDA-Public Use
  Company Number: None

PATIENT
  Age: 70 Year
  Sex: Male
  Weight: 44 kg

DRUGS (1)
  1. ERTAPENEM 1 GRAM MERCK [Suspect]
     Indication: ABDOMINAL INFECTION
     Dosage: 1 GRAM DAILY IV
     Route: 042
     Dates: start: 20070613, end: 20070620

REACTIONS (6)
  - AGITATION [None]
  - DRUG TOXICITY [None]
  - OXYGEN SATURATION ABNORMAL [None]
  - PSYCHOTIC DISORDER [None]
  - RESPIRATION ABNORMAL [None]
  - STUPOR [None]
